FAERS Safety Report 9242037 (Version 2)
Quarter: 2013Q3

REPORT INFORMATION
  Report Type: Spontaneous
  Country: FR (occurrence: FR)
  Receive Date: 20130419
  Receipt Date: 20130911
  Transmission Date: 20140515
  Serious: Yes (Hospitalization)
  Sender: FDA-Public Use
  Company Number: FR-ROCHE-1216028

PATIENT
  Age: 80 Year
  Sex: Male

DRUGS (11)
  1. XOLAIR [Suspect]
     Indication: ASTHMA
     Route: 065
  2. PREVISCAN (FLUINDIONE) [Concomitant]
     Route: 065
  3. SYMBICORT [Concomitant]
  4. PULMICORT [Concomitant]
  5. VENTOLINE [Concomitant]
  6. IXPRIM [Concomitant]
     Route: 065
  7. DUPHALAC [Concomitant]
  8. ENANTONE L P [Concomitant]
  9. LYRICA [Concomitant]
     Route: 065
  10. UVEDOSE [Concomitant]
  11. PNEUMO 23 [Concomitant]

REACTIONS (33)
  - Neuropathy peripheral [Unknown]
  - Peripheral sensory neuropathy [Unknown]
  - Vasculitis [Unknown]
  - Allodynia [Unknown]
  - Dysuria [Unknown]
  - Dysuria [Unknown]
  - Dermatitis [Unknown]
  - Tendon necrosis [Unknown]
  - Depression [Unknown]
  - Hiatus hernia [Unknown]
  - Amyotrophy [Unknown]
  - Arteriosclerosis [Unknown]
  - Pulmonary mass [Unknown]
  - Cardiac septal hypertrophy [Unknown]
  - Skin lesion [Unknown]
  - Sialoadenitis [Unknown]
  - Abdominal mass [Unknown]
  - C-reactive protein increased [Unknown]
  - Monoclonal immunoglobulin present [Unknown]
  - Blood iron decreased [Unknown]
  - Alanine aminotransferase increased [Unknown]
  - Transferrin decreased [Unknown]
  - Transferrin saturation decreased [Unknown]
  - Alpha globulin decreased [Unknown]
  - Immunoglobulins decreased [Unknown]
  - Blood immunoglobulin M decreased [Unknown]
  - Blood immunoglobulin G decreased [Unknown]
  - Bacterial prostatitis [Unknown]
  - Obstructive airways disorder [Unknown]
  - Haemoglobin decreased [Unknown]
  - Blood creatinine increased [Unknown]
  - Pain [Unknown]
  - Carpal tunnel syndrome [Unknown]
